FAERS Safety Report 14916988 (Version 1)
Quarter: 2018Q2

REPORT INFORMATION
  Report Type: Spontaneous
  Country: US (occurrence: US)
  Receive Date: 20180520
  Receipt Date: 20180520
  Transmission Date: 20180711
  Serious: No
  Sender: FDA-Public Use
  Company Number: US-AMGEN-USASP2018066052

PATIENT
  Age: 63 Year
  Sex: Female

DRUGS (3)
  1. XELJANZ XR [Concomitant]
     Active Substance: TOFACITINIB CITRATE
     Dosage: 11 MG, QD
     Route: 048
  2. ENBREL [Suspect]
     Active Substance: ETANERCEPT
     Indication: RHEUMATOID ARTHRITIS
     Dosage: UNK
     Route: 065
  3. METHOTREXATE. [Concomitant]
     Active Substance: METHOTREXATE
     Dosage: UNK
     Route: 048

REACTIONS (12)
  - Hand deformity [Unknown]
  - Joint swelling [Unknown]
  - Kyphosis [Unknown]
  - Tenderness [Unknown]
  - Knee deformity [Unknown]
  - Crepitations [Unknown]
  - Arthralgia [Unknown]
  - Drug effect decreased [Unknown]
  - Back pain [Unknown]
  - Swelling [Unknown]
  - Musculoskeletal stiffness [Unknown]
  - Rales [Unknown]

NARRATIVE: CASE EVENT DATE: 201805
